FAERS Safety Report 9394356 (Version 6)
Quarter: 2014Q2

REPORT INFORMATION
  Report Type: Spontaneous
  Country: TR (occurrence: TR)
  Receive Date: 20130711
  Receipt Date: 20140624
  Transmission Date: 20141212
  Serious: Yes (Other)
  Sender: FDA-Public Use
  Company Number: TR-AMGEN-TURSP2013048079

PATIENT
  Age: 36 Year
  Sex: Male

DRUGS (3)
  1. ENBREL [Suspect]
     Indication: ANKYLOSING SPONDYLITIS
     Dosage: 50 MG, WEEKLY
     Route: 058
     Dates: start: 20110511, end: 201305
  2. ENBREL [Suspect]
     Dosage: 50 MG, WEEKLY
     Route: 058
     Dates: end: 201307
  3. ENBREL [Suspect]
     Dosage: 50 MG, QWK
     Route: 058
     Dates: end: 20140418

REACTIONS (9)
  - Nephrolithiasis [Recovered/Resolved]
  - Productive cough [Not Recovered/Not Resolved]
  - Dysphagia [Unknown]
  - C-reactive protein decreased [Not Recovered/Not Resolved]
  - Nasal turbinate hypertrophy [Unknown]
  - Urinary tract infection [Recovered/Resolved]
  - Infection [Recovered/Resolved]
  - Injection site swelling [Recovered/Resolved]
  - Injection site bruising [Recovered/Resolved]
